FAERS Safety Report 7656688-5 (Version None)
Quarter: 2011Q3

REPORT INFORMATION
  Report Type: 
  Country: None (occurrence: None)
  Receive Date: 20110804
  Receipt Date: 20110729
  Transmission Date: 20111222
  Serious: Yes (Life-Threatening, Hospitalization, Disabling)
  Sender: FDA-Public Use
  Company Number: US-MERCK-1106USA00742

PATIENT
  Age: 39 Year
  Sex: Female
  Weight: 57 kg

DRUGS (6)
  1. STROMECTOL [Suspect]
     Route: 054
  2. SULFAMETHOXAZOLE AND TRIMETHOPRIM [Concomitant]
     Route: 048
  3. METHYLPREDNISOLONE [Concomitant]
     Route: 048
  4. GANCICLOVIR [Concomitant]
     Route: 042
  5. STROMECTOL [Suspect]
     Indication: STRONGYLOIDIASIS
     Route: 048
  6. STROMECTOL [Suspect]
     Route: 058

REACTIONS (2)
  - TREATMENT FAILURE [None]
  - INCORRECT ROUTE OF DRUG ADMINISTRATION [None]
